FAERS Safety Report 10472213 (Version 1)
Quarter: 2014Q3

REPORT INFORMATION
  Report Type: Spontaneous
  Country: US (occurrence: None)
  Receive Date: 20140923
  Receipt Date: 20140923
  Transmission Date: 20150326
  Serious: Yes (Disabling)
  Sender: FDA-Public Use
  Company Number: None

PATIENT
  Age: 34 Year
  Sex: Female
  Weight: 68.04 kg

DRUGS (1)
  1. MIRENA [Suspect]
     Active Substance: LEVONORGESTREL
     Dates: start: 20130301, end: 20140921

REACTIONS (6)
  - Dysmenorrhoea [None]
  - Endometriosis [None]
  - Muscle spasms [None]
  - Amenorrhoea [None]
  - Pelvic pain [None]
  - Menorrhagia [None]

NARRATIVE: CASE EVENT DATE: 20140715
